FAERS Safety Report 16914403 (Version 1)
Quarter: 2019Q4

REPORT INFORMATION
  Report Type: Spontaneous
  Country: FR (occurrence: FR)
  Receive Date: 20191014
  Receipt Date: 20191014
  Transmission Date: 20200122
  Serious: Yes (Hospitalization, Other)
  Sender: FDA-Public Use
  Company Number: FR-SA-2019SA277573

PATIENT
  Age: 54 Year
  Sex: Male
  Weight: 100 kg

DRUGS (10)
  1. MORPHINE SULFATE. [Suspect]
     Active Substance: MORPHINE SULFATE
     Indication: BACK PAIN
     Dosage: 10 MG, PRN IF PAIN (MAX 6 / DAY)
     Route: 048
     Dates: start: 20190805, end: 20190908
  2. LOVENOX [Suspect]
     Active Substance: ENOXAPARIN SODIUM
     Indication: THROMBOSIS PROPHYLAXIS
     Dosage: 4000 IU, QD
     Route: 058
     Dates: start: 20190906
  3. CORTANCYL [Concomitant]
     Active Substance: PREDNISONE
     Indication: BACK PAIN
     Dosage: 60 MG, QD
     Route: 048
  4. SYMBICORT [Concomitant]
     Active Substance: BUDESONIDE\FORMOTEROL FUMARATE DIHYDRATE
     Indication: DYSPNOEA
     Dosage: 1-0-1
     Route: 055
  5. STELARA [Suspect]
     Active Substance: USTEKINUMAB
     Indication: PSORIASIS
     Dosage: 90 MG, Q12W
     Route: 048
     Dates: start: 20171110, end: 20190719
  6. GABAPENTIN. [Suspect]
     Active Substance: GABAPENTIN
     Indication: NEURALGIA
     Dosage: 400 MG, QD
     Route: 048
     Dates: start: 20190821, end: 20190908
  7. CLONAZEPAM. [Suspect]
     Active Substance: CLONAZEPAM
     Indication: NEURALGIA
     Dosage: 15 GTT DROPS, QD (5 DROPS MORNING AND NOON, 10 IN THE EVENING)
     Route: 048
     Dates: start: 20190821, end: 20190908
  8. MORPHINE SULFATE. [Suspect]
     Active Substance: MORPHINE SULFATE
     Indication: BACK PAIN
     Dosage: 60 MG, QD
     Route: 048
     Dates: start: 20190805, end: 20190908
  9. VENTOLINE [SALBUTAMOL] [Concomitant]
     Active Substance: ALBUTEROL SULFATE
     Indication: DYSPNOEA
     Dosage: 1 DF, PRN (IF PAIN (MAX 6 / DAY))
     Route: 055
  10. PANTOPRAZOLE SODIUM. [Concomitant]
     Active Substance: PANTOPRAZOLE SODIUM
     Indication: PEPTIC ULCER
     Dosage: 20 MG, QD
     Route: 048

REACTIONS (2)
  - Respiratory distress [Recovered/Resolved]
  - Bronchospasm [Recovered/Resolved]

NARRATIVE: CASE EVENT DATE: 20190908
